FAERS Safety Report 17020026 (Version 4)
Quarter: 2020Q2

REPORT INFORMATION
  Report Type: Report from Study
  Country: CA (occurrence: CA)
  Receive Date: 20191112
  Receipt Date: 20200401
  Transmission Date: 20200713
  Serious: Yes (Other)
  Sender: FDA-Public Use
  Company Number: CA-BRISTOL-MYERS SQUIBB COMPANY-BMS-2019-105132

PATIENT
  Sex: Male

DRUGS (1)
  1. ABATACEPT [Suspect]
     Active Substance: ABATACEPT
     Indication: RHEUMATOID ARTHRITIS
     Dosage: 125 MILLIGRAM, QWK
     Route: 058
     Dates: start: 20170930

REACTIONS (6)
  - Pulmonary oedema [Unknown]
  - Haemoptysis [Recovered/Resolved]
  - Renal impairment [Unknown]
  - Dyspnoea [Unknown]
  - Pneumonia [Unknown]
  - Gait disturbance [Unknown]
